FAERS Safety Report 6330246-7 (Version None)
Quarter: 2009Q3

REPORT INFORMATION
  Report Type: 
  Country: None (occurrence: None)
  Receive Date: 20090827
  Receipt Date: 20090527
  Transmission Date: 20100115
  Serious: No
  Sender: FDA-Public Use
  Company Number: US-KINGPHARMUSA00001-K200900644

PATIENT
  Age: 59 Year
  Sex: Male

DRUGS (6)
  1. FLECTOR [Suspect]
     Indication: MUSCULOSKELETAL PAIN
     Dosage: 1 PATCH, BID
     Route: 061
     Dates: start: 20090519, end: 20090525
  2. NEURONTIN [Concomitant]
     Indication: NEURALGIA
     Dosage: UNK, QD
     Route: 048
  3. SIMVASTATIN [Concomitant]
     Dosage: UNK, QD
     Route: 048
  4. KLONOPIN [Concomitant]
     Dosage: UNK, QD
     Route: 048
  5. TRAMADOL HCL [Concomitant]
     Dosage: UNK, PRN
     Route: 048
  6. ATENOLOL [Concomitant]
     Indication: HYPERTENSION
     Dosage: UNK, QD
     Route: 048

REACTIONS (2)
  - EXCORIATION [None]
  - RASH [None]
